FAERS Safety Report 12806225 (Version 3)
Quarter: 2016Q4

REPORT INFORMATION
  Report Type: Report from Study
  Country: KR (occurrence: KR)
  Receive Date: 20161004
  Receipt Date: 20161102
  Transmission Date: 20170207
  Serious: Yes (Death, Hospitalization)
  Sender: FDA-Public Use
  Company Number: PHHY2016KR135653

PATIENT
  Age: 59 Year
  Sex: Male
  Weight: 64.9 kg

DRUGS (1)
  1. VOTRIENT [Suspect]
     Active Substance: PAZOPANIB HYDROCHLORIDE
     Indication: RENAL CELL CARCINOMA
     Dosage: 800 MG, UNK
     Route: 048
     Dates: start: 20160227, end: 20160509

REACTIONS (8)
  - Neck pain [Fatal]
  - Malignant neoplasm progression [Fatal]
  - Cervical vertebral fracture [Unknown]
  - Malignant pleural effusion [Unknown]
  - Metastases to bone [Unknown]
  - Hypophagia [Unknown]
  - Dyspnoea [Unknown]
  - Multiple organ dysfunction syndrome [Fatal]

NARRATIVE: CASE EVENT DATE: 20160430
